FAERS Safety Report 9951128 (Version 1)
Quarter: 2014Q1

REPORT INFORMATION
  Report Type: Spontaneous
  Country: PR (occurrence: PR)
  Receive Date: 20140304
  Receipt Date: 20140304
  Transmission Date: 20141002
  Serious: Yes (Hospitalization)
  Sender: FDA-Public Use
  Company Number: PR-ABBVIE-13P-131-1066367-00

PATIENT
  Age: 68 Year
  Sex: Female
  Weight: 65.38 kg

DRUGS (12)
  1. HUMIRA [Suspect]
     Indication: RHEUMATOID ARTHRITIS
     Route: 058
     Dates: end: 20130226
  2. HUMIRA [Suspect]
     Route: 058
     Dates: start: 20130318
  3. ADVAIR [Concomitant]
     Indication: BRONCHITIS CHRONIC
     Dosage: 1 PUMP PRN
     Route: 055
     Dates: start: 2009
  4. ALBUTEROL [Concomitant]
     Indication: BRONCHITIS CHRONIC
     Dosage: 1-2 PUMPS DAILY AS NEEDED
     Route: 055
     Dates: start: 2009
  5. ALBUTEROL [Concomitant]
     Indication: BRONCHITIS CHRONIC
     Dosage: 2-3 THERAPIES DAILY AS NEEDED
     Route: 055
     Dates: start: 2009
  6. 5 DIFFERENT KINDS OF UNKNOWN EYE DROPS [Concomitant]
     Indication: DRY EYE
  7. 5 DIFFERENT KINDS OF UNKNOWN EYE DROPS [Concomitant]
     Indication: CONJUNCTIVITIS
  8. PREDNISONE [Concomitant]
     Indication: RHEUMATOID ARTHRITIS
     Route: 048
     Dates: start: 1996
  9. CALCIUM [Concomitant]
     Indication: PRODUCT USED FOR UNKNOWN INDICATION
     Route: 048
  10. AMBIEN [Concomitant]
     Indication: SLEEP DISORDER THERAPY
     Route: 048
     Dates: start: 2009
  11. ZYRTEC [Concomitant]
     Indication: URTICARIA
     Route: 048
  12. ZYRTEC [Concomitant]
     Indication: MULTIPLE ALLERGIES

REACTIONS (3)
  - Escherichia urinary tract infection [Recovered/Resolved]
  - Bronchitis chronic [Recovered/Resolved with Sequelae]
  - Tracheal oedema [Recovered/Resolved]
